FAERS Safety Report 8842788 (Version 1)
Quarter: 2012Q4

REPORT INFORMATION
  Report Type: 
  Country: NL (occurrence: NL)
  Receive Date: 20121016
  Receipt Date: 20121016
  Transmission Date: 20130627
  Serious: Yes (Hospitalization)
  Sender: FDA-Public Use
  Company Number: NL-ELI_LILLY_AND_COMPANY-EWC980701169

PATIENT
  Age: 49 None
  Sex: Female

DRUGS (2)
  1. ZYPREXA [Suspect]
     Indication: CONVERSION DISORDER
     Dosage: 5 mg, daily (1/D)
     Route: 048
     Dates: start: 19980323, end: 19980425
  2. TRAZODONE [Concomitant]
     Indication: AGITATION
     Dosage: 100 mg, daily (1/D)
     Route: 048
     Dates: start: 19980409, end: 19980413

REACTIONS (17)
  - Gait disturbance [Recovered/Resolved]
  - Vomiting [Recovered/Resolved]
  - Anuria [Recovered/Resolved]
  - Sedation [Recovered/Resolved]
  - Communication disorder [Recovered/Resolved]
  - Erythema [Recovered/Resolved]
  - Depressed level of consciousness [Recovered/Resolved]
  - Abdominal pain upper [Recovered/Resolved]
  - Paraesthesia [Recovered/Resolved]
  - Hypernatraemia [Recovered/Resolved]
  - Thyroid disorder [Recovered/Resolved]
  - Hepatic function abnormal [Recovered/Resolved]
  - Hypoalbuminaemia [Recovered/Resolved]
  - Thrombocytopenia [Recovered/Resolved]
  - Haematuria [Recovered/Resolved]
  - Hypothermia [Recovered/Resolved]
  - Cholelithiasis [Unknown]
